FAERS Safety Report 6390886-6 (Version None)
Quarter: 2009Q4

REPORT INFORMATION
  Report Type: 
  Country: None (occurrence: None)
  Receive Date: 20091006
  Receipt Date: 20090929
  Transmission Date: 20100525
  Serious: Yes (Other)
  Sender: FDA-Public Use
  Company Number: US-JNJCH-2009026318

PATIENT
  Age: 47 Year
  Sex: Male

DRUGS (3)
  1. ZYRTEC [Suspect]
     Indication: HYPERSENSITIVITY
     Dosage: TEXT:ONE TABLET EVERY 24 HOURS FOR TWO DAYS
     Route: 048
  2. ALLOPURINOL [Concomitant]
     Indication: GOUT
     Dosage: TEXT:UNSPECIFIED DAILY
     Route: 065
  3. DRUG, UNSPECIFIED [Concomitant]
     Indication: HYPERTENSION
     Dosage: TEXT:UNSPECIFIED
     Route: 065

REACTIONS (4)
  - BACK PAIN [None]
  - DEPRESSION [None]
  - PERSONALITY CHANGE [None]
  - SOMNOLENCE [None]
